FAERS Safety Report 6285880-X (Version None)
Quarter: 2009Q3

REPORT INFORMATION
  Report Type: 
  Country: None (occurrence: None)
  Receive Date: 20090728
  Receipt Date: 20090721
  Transmission Date: 20100115
  Serious: Yes (Other)
  Sender: FDA-Public Use
  Company Number: US-ELI_LILLY_AND_COMPANY-US200907004706

PATIENT
  Sex: Female

DRUGS (4)
  1. HUMALOG [Suspect]
  2. HUMALOG [Suspect]
  3. LOPRESSOR [Concomitant]
  4. NITRO /00003201/ [Concomitant]
     Dosage: UNK, AS NEEDED

REACTIONS (5)
  - CEREBROVASCULAR ACCIDENT [None]
  - EYE HAEMORRHAGE [None]
  - HYPOACUSIS [None]
  - MYODESOPSIA [None]
  - VISUAL ACUITY REDUCED [None]
